FAERS Safety Report 14867313 (Version 1)
Quarter: 2018Q2

REPORT INFORMATION
  Report Type: Spontaneous
  Country: US (occurrence: US)
  Receive Date: 20180508
  Receipt Date: 20180508
  Transmission Date: 20180711
  Serious: No
  Sender: FDA-Public Use
  Company Number: US-ALKERMES INC.-ALK-2018-001576

PATIENT
  Age: 54 Year
  Sex: Female
  Weight: 72.56 kg

DRUGS (5)
  1. OTHER THERAPEUTIC PRODUCTS [Concomitant]
     Active Substance: UNSPECIFIED INGREDIENT
     Indication: MUSCULOSKELETAL PAIN
     Dosage: UNK
  2. OTHER THERAPEUTIC PRODUCTS [Concomitant]
     Active Substance: UNSPECIFIED INGREDIENT
     Indication: MUSCULOSKELETAL PAIN
     Dosage: UNK
  3. VIVITROL [Suspect]
     Active Substance: NALTREXONE
     Indication: ALCOHOLISM
     Dosage: 380 MG, QMO
     Route: 030
     Dates: start: 20180312
  4. OTHER THERAPEUTIC PRODUCTS [Concomitant]
     Active Substance: UNSPECIFIED INGREDIENT
     Indication: TENDONITIS
  5. OTHER THERAPEUTIC PRODUCTS [Concomitant]
     Active Substance: UNSPECIFIED INGREDIENT
     Indication: TENDONITIS

REACTIONS (2)
  - Inadequate analgesia [Not Recovered/Not Resolved]
  - Arthralgia [Not Recovered/Not Resolved]

NARRATIVE: CASE EVENT DATE: 201803
